FAERS Safety Report 12496125 (Version 1)
Quarter: 2016Q2

REPORT INFORMATION
  Report Type: Other
  Country: DE (occurrence: DE)
  Receive Date: 20160624
  Receipt Date: 20160624
  Transmission Date: 20160815
  Serious: Yes (Other)
  Sender: FDA-Public Use
  Company Number: DE-CIPLA LTD.-2016DE08055

PATIENT

DRUGS (7)
  1. EPIRUBICIN [Suspect]
     Active Substance: EPIRUBICIN
     Indication: ADENOCARCINOMA
     Dosage: 89.55 MG/STAPLES
     Route: 065
     Dates: start: 20141119, end: 20141119
  2. LEVOTHYROXINE SODIUM. [Concomitant]
     Active Substance: LEVOTHYROXINE SODIUM
     Dosage: 100 UG / TG.
     Route: 065
  3. LEVOTHYROXINE SODIUM. [Concomitant]
     Active Substance: LEVOTHYROXINE SODIUM
     Dosage: UNK
     Route: 065
  4. NOVALGIN [Concomitant]
     Active Substance: METAMIZOLE SODIUM
     Dosage: 30 TRPF. UPON NEED
     Route: 048
  5. FRAGMIN P FORTE [Concomitant]
     Active Substance: DALTEPARIN SODIUM
     Dosage: 2 * 1 DF / TG.
     Route: 065
  6. CISPLATIN. [Suspect]
     Active Substance: CISPLATIN
     Indication: ADENOCARCINOMA
     Dosage: 106.41 MG/STAPLES
     Route: 065
     Dates: start: 20141119, end: 20141119
  7. CAPECITABINE. [Suspect]
     Active Substance: CAPECITABINE
     Indication: ADENOCARCINOMA
     Dosage: 1300 MG/STAPLES
     Route: 048
     Dates: start: 20141119, end: 20141125

REACTIONS (17)
  - Deep vein thrombosis [Unknown]
  - Thrombosis [Unknown]
  - General physical health deterioration [Unknown]
  - Hypophagia [Not Recovered/Not Resolved]
  - Weight decreased [Unknown]
  - Diarrhoea [Not Recovered/Not Resolved]
  - Nausea [Unknown]
  - Pyrexia [Unknown]
  - Coagulation time prolonged [Unknown]
  - Febrile neutropenia [Unknown]
  - Asthenia [Unknown]
  - Hypomagnesaemia [Unknown]
  - Vomiting [Unknown]
  - Decreased appetite [Unknown]
  - Hypokalaemia [Unknown]
  - Vulvovaginal mycotic infection [Unknown]
  - Dehydration [Unknown]

NARRATIVE: CASE EVENT DATE: 20141125
